FAERS Safety Report 12665228 (Version 1)
Quarter: 2016Q3

REPORT INFORMATION
  Report Type: Other
  Country: FR (occurrence: FR)
  Receive Date: 20160818
  Receipt Date: 20160818
  Transmission Date: 20161109
  Serious: Yes (Hospitalization, Other)
  Sender: FDA-Public Use
  Company Number: FR-ASTELLAS-2016US014742

PATIENT
  Age: 69 Year
  Sex: Female

DRUGS (5)
  1. CORTANCYL [Concomitant]
     Active Substance: PREDNISONE
     Indication: IMMUNOSUPPRESSION
     Dosage: UNK UNK, UNKNOWN FREQ.
     Route: 065
     Dates: start: 2012
  2. TYGACIL [Suspect]
     Active Substance: TIGECYCLINE
     Indication: STENOTROPHOMONAS INFECTION
     Route: 042
     Dates: start: 20160319, end: 20160326
  3. CELLCEPT [Suspect]
     Active Substance: MYCOPHENOLATE MOFETIL\MYCOPHENOLATE MOFETIL HYDROCHLORIDE
     Indication: LUNG TRANSPLANT
     Dosage: UNK, UNKNOWN FREQ.
     Route: 048
     Dates: start: 2012, end: 20160322
  4. WELLVONE [Concomitant]
     Active Substance: ATOVAQUONE
     Indication: IMMUNOSUPPRESSION
     Dosage: UNK UNK, UNKNOWN FREQ.
     Route: 065
     Dates: start: 2012
  5. PROGRAF [Suspect]
     Active Substance: TACROLIMUS\TACROLIMUS ANHYDROUS
     Indication: LUNG TRANSPLANT
     Dosage: UNK UNK, UNKNOWN FREQ.
     Route: 048
     Dates: start: 2012, end: 20160317

REACTIONS (15)
  - Pneumonia respiratory syncytial viral [Unknown]
  - Stenotrophomonas infection [Unknown]
  - Chronic kidney disease [Unknown]
  - Pseudomonas infection [Unknown]
  - Off label use [Unknown]
  - Iron deficiency anaemia [Unknown]
  - Hepatomegaly [Unknown]
  - Pneumonia pseudomonal [Unknown]
  - Pancreatitis acute [Recovering/Resolving]
  - Hypertension [Unknown]
  - Diabetes mellitus [Unknown]
  - Fungal oesophagitis [Unknown]
  - Acute respiratory distress syndrome [Unknown]
  - Escherichia pyelonephritis [Unknown]
  - Cholestasis [Unknown]

NARRATIVE: CASE EVENT DATE: 20160326
